FAERS Safety Report 25796948 (Version 1)
Quarter: 2025Q3

REPORT INFORMATION
  Report Type: Spontaneous
  Country: AR (occurrence: AR)
  Receive Date: 20250912
  Receipt Date: 20250912
  Transmission Date: 20251020
  Serious: Yes (Hospitalization, Other)
  Sender: SANDOZ
  Company Number: AR-SANDOZ-SDZ2025AR066535

PATIENT
  Age: 28 Year
  Sex: Female

DRUGS (1)
  1. HYRIMOZ [Suspect]
     Active Substance: ADALIMUMAB-ADAZ
     Indication: Ankylosing spondylitis
     Route: 058
     Dates: start: 20250527

REACTIONS (1)
  - Ovarian cyst ruptured [Unknown]

NARRATIVE: CASE EVENT DATE: 20250827
